FAERS Safety Report 5822157-8 (Version None)
Quarter: 2008Q3

REPORT INFORMATION
  Report Type: 
  Country: None (occurrence: None)
  Receive Date: 20080721
  Receipt Date: 20080710
  Transmission Date: 20090109
  Serious: Yes (Hospitalization)
  Sender: FDA-Public Use
  Company Number: 2008001178

PATIENT
  Age: 73 Year
  Sex: Male

DRUGS (9)
  1. ERLOTINIB (ERLOTINIB) (TABLET) (ERLOTINIB) [Suspect]
     Indication: NON-SMALL CELL LUNG CANCER
     Dosage: 150 MG, QD, ORAL
     Route: 048
     Dates: start: 20080430, end: 20080503
  2. ANTIBIOTIC DRUG NOS [Concomitant]
  3. FAMOTIDINE [Concomitant]
  4. BASEN (VOGLIBOSE) [Concomitant]
  5. AMARYL [Concomitant]
  6. AMLODIPINE BESYLATE [Concomitant]
  7. DIOVAN [Concomitant]
  8. PROMAC [Concomitant]
  9. LENDORM [Concomitant]

REACTIONS (2)
  - DRUG EFFECT DECREASED [None]
  - HYPOGLYCAEMIA [None]
